FAERS Safety Report 17849099 (Version 1)
Quarter: 2020Q2

REPORT INFORMATION
  Report Type: Report from Study
  Country: US (occurrence: US)
  Receive Date: 20200602
  Receipt Date: 20200602
  Transmission Date: 20200714
  Serious: No
  Sender: FDA-Public Use
  Company Number: NVSC2020US151537

PATIENT
  Sex: Male

DRUGS (1)
  1. ENTRESTO [Suspect]
     Active Substance: SACUBITRIL\VALSARTAN
     Indication: CARDIAC FAILURE CHRONIC
     Dosage: 49.51 MG, BID
     Route: 048
     Dates: start: 20200520

REACTIONS (3)
  - Drug ineffective [Unknown]
  - Heart rate increased [Unknown]
  - Dizziness [Unknown]
